FAERS Safety Report 6938853-5 (Version None)
Quarter: 2010Q3

REPORT INFORMATION
  Report Type: 
  Country: None (occurrence: None)
  Receive Date: 20100824
  Receipt Date: 20100816
  Transmission Date: 20110219
  Serious: Yes (Hospitalization, Other)
  Sender: FDA-Public Use
  Company Number: US-ROCHE-721646

PATIENT
  Sex: Female
  Weight: 88.5 kg

DRUGS (6)
  1. VALIUM [Suspect]
     Dosage: STRENGTH: 5 OR 10 MG; OTHER INDICATION: FIBROMYALGIA AND OSTEOARTHRITIS
     Route: 048
     Dates: start: 19660101
  2. DIAZEPAM [Suspect]
     Indication: OSTEOARTHRITIS
     Dosage: STRENGTH: 5-10 MG; OTHER INDICATIONS: RESTLESS LEG SYNDROME AND FIBROMYALGIA
     Route: 048
     Dates: start: 20020101, end: 20030101
  3. SYNTHROID [Concomitant]
  4. DIOVAN [Concomitant]
  5. METFORMIN [Concomitant]
  6. ALLOPURINOL [Concomitant]

REACTIONS (10)
  - ARRHYTHMIA [None]
  - CATARACT OPERATION [None]
  - CELLULITIS [None]
  - COLITIS ULCERATIVE [None]
  - GOUT [None]
  - HYSTERECTOMY [None]
  - MYOCARDIAL INFARCTION [None]
  - PHARYNGEAL OPERATION [None]
  - SCIATICA [None]
  - SWELLING [None]
